FAERS Safety Report 17130051 (Version 2)
Quarter: 2020Q2

REPORT INFORMATION
  Report Type: Spontaneous
  Country: US (occurrence: US)
  Receive Date: 20191209
  Receipt Date: 20200604
  Transmission Date: 20200713
  Serious: No
  Sender: FDA-Public Use
  Company Number: US-SA-2019SA340259

PATIENT

DRUGS (8)
  1. CLOBETASOL [Concomitant]
     Active Substance: CLOBETASOL
  2. DUPIXENT [Suspect]
     Active Substance: DUPILUMAB
     Indication: DERMATITIS ALLERGIC
     Dosage: 600 MG, 1X
     Route: 058
     Dates: start: 20191123, end: 20191123
  3. DUPIXENT [Suspect]
     Active Substance: DUPILUMAB
     Dosage: 300 MG, QOW
     Route: 058
     Dates: start: 201912
  4. FLUOCINONIDE. [Concomitant]
     Active Substance: FLUOCINONIDE
  5. FLUOROURACIL. [Concomitant]
     Active Substance: FLUOROURACIL
  6. MUPIROCIN. [Concomitant]
     Active Substance: MUPIROCIN
  7. PANTOPRAZOLE [Concomitant]
     Active Substance: PANTOPRAZOLE
  8. TRIAMCINOLON [TRIAMCINOLONE] [Concomitant]
     Active Substance: TRIAMCINOLONE

REACTIONS (2)
  - Dry eye [Recovered/Resolved]
  - Eczema [Not Recovered/Not Resolved]
